FAERS Safety Report 8066569-3 (Version None)
Quarter: 2012Q1

REPORT INFORMATION
  Report Type: 
  Country: None (occurrence: None)
  Receive Date: 20120124
  Receipt Date: 20120118
  Transmission Date: 20120608
  Serious: Yes (Other)
  Sender: FDA-Public Use
  Company Number: PHHY2012FR004877

PATIENT
  Age: 23 Year
  Sex: Female

DRUGS (2)
  1. SULPROSTONE [Suspect]
     Indication: POSTPARTUM HAEMORRHAGE
  2. OXYTOCIN [Suspect]
     Route: 042

REACTIONS (1)
  - DRUG INEFFECTIVE [None]
